FAERS Safety Report 12613754 (Version 1)
Quarter: 2016Q3

REPORT INFORMATION
  Report Type: Report from Study
  Country: CO (occurrence: CO)
  Receive Date: 20160802
  Receipt Date: 20160802
  Transmission Date: 20161109
  Serious: Yes (Hospitalization)
  Sender: FDA-Public Use
  Company Number: CO-ELI_LILLY_AND_COMPANY-CO201607012686

PATIENT
  Sex: Male
  Weight: 51 kg

DRUGS (1)
  1. CETUXIMAB [Suspect]
     Active Substance: CETUXIMAB
     Indication: COLORECTAL CANCER METASTATIC
     Dosage: UNK, UNKNOWN
     Route: 065
     Dates: start: 20151215

REACTIONS (3)
  - Epistaxis [Recovering/Resolving]
  - Malignant neoplasm progression [Unknown]
  - Mouth haemorrhage [Recovering/Resolving]
